FAERS Safety Report 7781640-9 (Version None)
Quarter: 2011Q3

REPORT INFORMATION
  Report Type: 
  Country: None (occurrence: None)
  Receive Date: 20110927
  Receipt Date: 20110921
  Transmission Date: 20111222
  Serious: Yes (Hospitalization)
  Sender: FDA-Public Use
  Company Number: US-B.I. PHARMACEUTICALS,INC./RIDGEFIELD-2011-BP-22623BP

PATIENT
  Age: 77 Year
  Sex: Female

DRUGS (10)
  1. MULTI-VITAMIN [Concomitant]
     Indication: SUPPLEMENTATION THERAPY
     Route: 048
  2. ALBUTEROL [Concomitant]
     Indication: ASTHMA
     Route: 055
  3. LASIX [Concomitant]
     Indication: HYPERTENSION
     Route: 048
  4. JANUVIA [Concomitant]
     Indication: DIABETES MELLITUS
     Route: 048
  5. FERROUS SULFATE TAB [Concomitant]
     Indication: SUPPLEMENTATION THERAPY
     Route: 048
  6. POTASSIUM [Concomitant]
     Indication: SUPPLEMENTATION THERAPY
     Route: 048
  7. ASPIRIN [Concomitant]
     Indication: PROPHYLAXIS
     Route: 048
  8. SPIRIVA [Suspect]
     Indication: ASTHMA
     Dosage: 18 MCG
     Route: 055
     Dates: start: 20110701
  9. PREDNISONE [Concomitant]
     Indication: ASTHMA
  10. PREDNISONE [Concomitant]
     Indication: DYSPNOEA
     Route: 048

REACTIONS (3)
  - INFECTION [None]
  - PNEUMONIA [None]
  - CEREBROVASCULAR ACCIDENT [None]
